FAERS Safety Report 25976659 (Version 1)
Quarter: 2025Q4

REPORT INFORMATION
  Report Type: Spontaneous
  Country: US (occurrence: US)
  Receive Date: 20251029
  Receipt Date: 20251029
  Transmission Date: 20260118
  Serious: No
  Sender: BIOMARIN
  Company Number: US-BIOMARINAP-US-2025-169639

PATIENT
  Age: 13 Year
  Sex: Male

DRUGS (2)
  1. VOXZOGO [Suspect]
     Active Substance: VOSORITIDE
     Indication: Osteochondrodysplasia
     Dosage: 0.3 MILLILITER, QD
     Dates: start: 20251017
  2. VOXZOGO [Suspect]
     Active Substance: VOSORITIDE
     Dosage: UNK

REACTIONS (5)
  - Otitis media acute [Unknown]
  - Viral upper respiratory tract infection [Unknown]
  - Oropharyngeal pain [Unknown]
  - Sinus congestion [Unknown]
  - Cough [Unknown]

NARRATIVE: CASE EVENT DATE: 20251017
